FAERS Safety Report 14920007 (Version 1)
Quarter: 2018Q2

REPORT INFORMATION
  Report Type: Spontaneous
  Country: DE (occurrence: DE)
  Receive Date: 20180521
  Receipt Date: 20180521
  Transmission Date: 20180711
  Serious: Yes (Other)
  Sender: FDA-Public Use
  Company Number: DE-PFIZER INC-2018201971

PATIENT
  Age: 23 Year
  Sex: Male

DRUGS (3)
  1. LORAZEPAM. [Suspect]
     Active Substance: LORAZEPAM
     Dosage: 1 MG, 2-0-0-0
  2. VALPROIC ACID. [Suspect]
     Active Substance: VALPROIC ACID
     Dosage: 650 MG, 1-0-0-0
  3. PAROXETINE. [Suspect]
     Active Substance: PAROXETINE
     Dosage: 40 MG, 1-0-0-0

REACTIONS (8)
  - Accidental overdose [Unknown]
  - Balance disorder [Unknown]
  - Paraesthesia [Unknown]
  - Derealisation [Unknown]
  - Fatigue [Unknown]
  - Acute respiratory failure [Unknown]
  - Headache [Unknown]
  - Feeling abnormal [Unknown]
